FAERS Safety Report 12913457 (Version 1)
Quarter: 2016Q4

REPORT INFORMATION
  Report Type: Spontaneous
  Country: US (occurrence: US)
  Receive Date: 20161104
  Receipt Date: 20161104
  Transmission Date: 20170207
  Serious: Yes (Other)
  Sender: FDA-Public Use
  Company Number: US-ELI_LILLY_AND_COMPANY-US201610009770

PATIENT
  Age: 78 Year
  Sex: Female

DRUGS (3)
  1. HUMALOG [Suspect]
     Active Substance: INSULIN LISPRO
     Indication: TYPE 2 DIABETES MELLITUS
     Dosage: 12 U, BEFORE BREAKFAST
     Route: 065
     Dates: start: 2006
  2. HUMALOG [Suspect]
     Active Substance: INSULIN LISPRO
     Dosage: 22 U, BEFORE DINNER
     Route: 065
     Dates: start: 2006
  3. LANTUS [Concomitant]
     Active Substance: INSULIN GLARGINE

REACTIONS (7)
  - Hypertension [Unknown]
  - Myasthenia gravis [Unknown]
  - Blood cholesterol increased [Unknown]
  - Drug dose omission [Unknown]
  - Essential tremor [Unknown]
  - Blood glucose increased [Recovered/Resolved]
  - Blood glucose decreased [Unknown]

NARRATIVE: CASE EVENT DATE: 20161025
